FAERS Safety Report 4622211-2 (Version None)
Quarter: 2005Q1

REPORT INFORMATION
  Report Type: 
  Country: None (occurrence: None)
  Receive Date: 20050322
  Receipt Date: 20050322
  Transmission Date: 20050727
  Serious: No
  Sender: FDA-Public Use
  Company Number: None

PATIENT
  Sex: Female
  Weight: 60 kg

DRUGS (8)
  1. CAPECITABINE [Suspect]
     Dosage: 600 MG/M2 Q12 HRS (1200 MG/M2/DAY) ORALLY DAILY (7 DAYA PER WEEK) DURING RT STARTING DAY 1
     Route: 048
  2. IRINOTECAN HCL [Suspect]
     Dosage: SEE IMAGE
     Route: 042
  3. FLUOROURACIL [Suspect]
     Dosage: SEE IMAGE
     Route: 042
  4. LEUCOVORIN CALCIUM [Suspect]
     Dosage: 400 MG/M2 IV OVER 2 HOURS (DAY1, EVERY 14 DAYS)
  5. . [Concomitant]
  6. AMBINE [Concomitant]
  7. DILAUDID [Concomitant]
  8. PROTONIX [Concomitant]

REACTIONS (6)
  - ASTHENIA [None]
  - DEHYDRATION [None]
  - DRUG TOXICITY [None]
  - DYSPNOEA [None]
  - FAECAL VOLUME INCREASED [None]
  - POST PROCEDURAL PAIN [None]
